FAERS Safety Report 17507235 (Version 1)
Quarter: 2020Q1

REPORT INFORMATION
  Report Type: Spontaneous
  Country: US (occurrence: US)
  Receive Date: 20200305
  Receipt Date: 20200305
  Transmission Date: 20200409
  Serious: No
  Sender: FDA-Public Use
  Company Number: US-ROCHE-2373281

PATIENT
  Age: 67 Year
  Sex: Male

DRUGS (2)
  1. XOLAIR [Suspect]
     Active Substance: OMALIZUMAB
     Dosage: TOTAL OF 225 MG; ONGOING: YES
     Route: 050
  2. XOLAIR [Suspect]
     Active Substance: OMALIZUMAB
     Indication: ASTHMA
     Dosage: TOTAL OF 225 MG; ONGOING: YES
     Route: 050

REACTIONS (4)
  - Burning sensation [Recovered/Resolved]
  - Needle issue [Unknown]
  - Product quality issue [Unknown]
  - Injection site pain [Unknown]

NARRATIVE: CASE EVENT DATE: 20190802
